FAERS Safety Report 5010637-7 (Version None)
Quarter: 2006Q2

REPORT INFORMATION
  Report Type: 
  Country: None (occurrence: None)
  Receive Date: 20060525
  Receipt Date: 20060517
  Transmission Date: 20061013
  Serious: Yes (Hospitalization)
  Sender: FDA-Public Use
  Company Number: 2006UW09665

PATIENT
  Age: 60 Year
  Sex: Male
  Weight: 78.5 kg

DRUGS (6)
  1. CRESTOR [Suspect]
     Indication: BLOOD CHOLESTEROL INCREASED
     Route: 048
     Dates: start: 20060423
  2. CRESTOR [Suspect]
     Indication: BLOOD TRIGLYCERIDES INCREASED
     Route: 048
     Dates: start: 20060423
  3. ACCUPRIL [Concomitant]
  4. NORVASC [Concomitant]
  5. NIASPAN [Concomitant]
  6. FOLIC ACID [Concomitant]

REACTIONS (2)
  - EXTRASYSTOLES [None]
  - HEART RATE DECREASED [None]
